FAERS Safety Report 26114907 (Version 1)
Quarter: 2025Q4

REPORT INFORMATION
  Report Type: Spontaneous
  Country: US (occurrence: US)
  Receive Date: 20251203
  Receipt Date: 20251203
  Transmission Date: 20260118
  Serious: No
  Sender: GLENMARK
  Company Number: US-GLENMARK PHARMACEUTICALS-2025GMK100823

PATIENT

DRUGS (1)
  1. ATOVAQUONE [Suspect]
     Active Substance: ATOVAQUONE
     Indication: Product used for unknown indication
     Dosage: UNK, AS NEEDED
     Route: 048
     Dates: start: 20250308

REACTIONS (3)
  - Product storage error [Unknown]
  - Liquid product physical issue [Unknown]
  - Poor quality product administered [Unknown]
